FAERS Safety Report 9056549 (Version 1)
Quarter: 2013Q1

REPORT INFORMATION
  Report Type: Spontaneous
  Country: JP (occurrence: JP)
  Receive Date: 20130204
  Receipt Date: 20130204
  Transmission Date: 20140127
  Serious: Yes (Other)
  Sender: FDA-Public Use
  Company Number: JP-VIIV HEALTHCARE LIMITED-B0863617A

PATIENT
  Age: 47 Year
  Sex: Male

DRUGS (4)
  1. EPZICOM [Suspect]
     Indication: ACQUIRED IMMUNODEFICIENCY SYNDROME
     Route: 048
     Dates: start: 200906
  2. REYATAZ [Suspect]
     Indication: ACQUIRED IMMUNODEFICIENCY SYNDROME
     Route: 048
     Dates: start: 200906
  3. IMIQUIMOD [Concomitant]
     Indication: ANOGENITAL WARTS
     Route: 003
     Dates: start: 200904, end: 200906
  4. IMIQUIMOD [Concomitant]
     Indication: ANOGENITAL WARTS
     Route: 003
     Dates: start: 201101, end: 201103

REACTIONS (3)
  - Immune reconstitution inflammatory syndrome [Recovered/Resolved]
  - Anogenital warts [Recovered/Resolved]
  - Herpes zoster [Recovered/Resolved]
